FAERS Safety Report 8515988 (Version 7)
Quarter: 2012Q4

REPORT INFORMATION
  Report Type: 
  Country: US (occurrence: US)
  Receive Date: 20120417
  Receipt Date: 20121127
  Transmission Date: 20130627
  Serious: Yes (Death, Life-Threatening, Hospitalization)
  Sender: FDA-Public Use
  Company Number: US-ACTELION-A-NJ2012-63842

PATIENT
  Age: 70 Year
  Sex: Male

DRUGS (4)
  1. TRACLEER [Suspect]
     Indication: PULMONARY ARTERIAL HYPERTENSION
     Dosage: 125 mg, bid
     Route: 048
     Dates: start: 20091229, end: 20121112
  2. SPIRONOLACTONE [Concomitant]
  3. ASPIRIN [Concomitant]
  4. PREDNISONE [Concomitant]

REACTIONS (26)
  - Respiratory failure [Fatal]
  - Metastases to liver [Not Recovered/Not Resolved]
  - Pseudomonas bronchitis [Unknown]
  - Bronchoalveolar lavage [Not Recovered/Not Resolved]
  - Haemorrhoids [Recovering/Resolving]
  - Transfusion [Recovering/Resolving]
  - Pneumonia pseudomonas aeruginosa [Recovering/Resolving]
  - Staphylococcal infection [Recovering/Resolving]
  - Sputum discoloured [Recovering/Resolving]
  - Chest pain [Recovering/Resolving]
  - Dyspnoea [Recovering/Resolving]
  - Rectal haemorrhage [Recovering/Resolving]
  - Angina pectoris [Recovering/Resolving]
  - Pain [Not Recovered/Not Resolved]
  - Pneumonia [Recovering/Resolving]
  - Cardiac failure [Recovering/Resolving]
  - Microcytic anaemia [Recovering/Resolving]
  - Headache [Not Recovered/Not Resolved]
  - Pulmonary mass [Not Recovered/Not Resolved]
  - Pulmonary fibrosis [Not Recovered/Not Resolved]
  - Disease progression [Not Recovered/Not Resolved]
  - Lymphadenopathy [Unknown]
  - Acute respiratory failure [Recovering/Resolving]
  - Hypoxia [Recovering/Resolving]
  - Oxygen saturation decreased [Recovering/Resolving]
  - Increased upper airway secretion [Not Recovered/Not Resolved]
